FAERS Safety Report 6105598-3 (Version None)
Quarter: 2009Q1

REPORT INFORMATION
  Report Type: 
  Country: None (occurrence: None)
  Receive Date: 20090306
  Receipt Date: 20090224
  Transmission Date: 20090719
  Serious: Yes (Hospitalization)
  Sender: FDA-Public Use
  Company Number: US-BAXTER-2009BH003131

PATIENT
  Age: 47 Year
  Sex: Female

DRUGS (2)
  1. ENDOXAN BAXTER [Suspect]
     Indication: BREAST CANCER
     Route: 065
     Dates: start: 20090127
  2. TAXOTERE [Suspect]
     Indication: BREAST CANCER
     Route: 065
     Dates: start: 20090127

REACTIONS (1)
  - CAECITIS [None]
